FAERS Safety Report 8004916-9 (Version None)
Quarter: 2011Q4

REPORT INFORMATION
  Report Type: 
  Country: None (occurrence: None)
  Receive Date: 20111219
  Receipt Date: 20111205
  Transmission Date: 20120403
  Serious: Yes (Hospitalization, Other)
  Sender: FDA-Public Use
  Company Number: 2010BI038955

PATIENT
  Age: 52 Year
  Sex: Male

DRUGS (15)
  1. OMEPRAZOLE [Concomitant]
  2. LEVOFLOXACIN [Concomitant]
  3. FLUDARA [Concomitant]
  4. VICCLOX [Concomitant]
  5. ZEVALIN [Suspect]
     Indication: LYMPHOMA
     Dosage: 1030 MBQ, 1X, IV
     Route: 042
     Dates: start: 20100126, end: 20100126
  6. ZEVALIN [Suspect]
     Indication: FOLLICLE CENTRE LYMPHOMA, FOLLICULAR GRADE I, II, III
     Dosage: 1030 MBQ, 1X, IV
     Route: 042
     Dates: start: 20100126, end: 20100126
  7. RITUXIMAB (RITUXIMAB) [Suspect]
     Indication: LYMPHOMA
     Dosage: 250 MG/M2, 1X, IV DRIP
     Route: 041
     Dates: start: 20100119, end: 20100119
  8. ANTIHISTAMINES [Concomitant]
  9. ITRACONAZOLE [Concomitant]
  10. OTHER ANALGESICS AND ANTIPYRETICS [Concomitant]
  11. LASIX [Concomitant]
  12. RITUXIMAB (RITUXIMAB) [Suspect]
     Indication: FOLLICLE CENTRE LYMPHOMA, FOLLICULAR GRADE I, II, III
     Dosage: 250 MC/M2, 1X, IV DRIP
     Route: 041
     Dates: start: 20100126, end: 20100126
  13. RITUXIMAB (RITUXIMAB) [Suspect]
     Indication: LYMPHOMA
     Dosage: 250 MC/M2, 1X, IV DRIP
     Route: 041
     Dates: start: 20100126, end: 20100126
  14. ZEVALIN [Suspect]
     Indication: LYMPHOMA
     Dosage: 130 MBQ, 1X, IV
     Route: 042
     Dates: start: 20100119, end: 20100119
  15. ZEVALIN [Suspect]
     Indication: FOLLICLE CENTRE LYMPHOMA, FOLLICULAR GRADE I, II, III
     Dosage: 130 MBQ, 1X, IV
     Route: 042
     Dates: start: 20100119, end: 20100119

REACTIONS (7)
  - HAEMATOCRIT DECREASED [None]
  - SEPSIS [None]
  - NEUTROPHIL COUNT DECREASED [None]
  - HAEMOGLOBIN DECREASED [None]
  - WHITE BLOOD CELL COUNT DECREASED [None]
  - PLATELET COUNT DECREASED [None]
  - RED BLOOD CELL COUNT DECREASED [None]
